FAERS Safety Report 9859618 (Version 3)
Quarter: 2014Q1

REPORT INFORMATION
  Report Type: Spontaneous
  Country: JP (occurrence: JP)
  Receive Date: 20140131
  Receipt Date: 20140327
  Transmission Date: 20141002
  Serious: Yes (Death, Hospitalization, Other)
  Sender: FDA-Public Use
  Company Number: JP-ABBVIE-12P-087-0919031-00

PATIENT
  Age: 78 Year
  Sex: Female

DRUGS (8)
  1. HUMIRA [Suspect]
     Indication: RHEUMATOID ARTHRITIS
     Route: 058
     Dates: start: 20110119, end: 20111020
  2. RHEUMATREX [Suspect]
     Indication: RHEUMATOID ARTHRITIS
     Route: 048
     Dates: start: 19971203, end: 20111102
  3. PREDONINE [Suspect]
     Indication: RHEUMATOID ARTHRITIS
     Route: 048
     Dates: start: 20071114
  4. ENTECAVIR [Concomitant]
     Indication: PRODUCT USED FOR UNKNOWN INDICATION
  5. PROTON PUMP INHIBITORS [Concomitant]
     Indication: PRODUCT USED FOR UNKNOWN INDICATION
  6. FUROSEMIDE [Concomitant]
     Indication: PRODUCT USED FOR UNKNOWN INDICATION
  7. SPIRONOLACTONE [Concomitant]
     Indication: PRODUCT USED FOR UNKNOWN INDICATION
  8. SPIRONOLACTONE [Concomitant]

REACTIONS (6)
  - Hepatic failure [Fatal]
  - Hepatitis B [Fatal]
  - Hepatitis B surface antibody positive [Unknown]
  - Stasis dermatitis [Unknown]
  - Urine output decreased [Unknown]
  - Erythema [Unknown]
